FAERS Safety Report 7622756-7 (Version None)
Quarter: 2011Q3

REPORT INFORMATION
  Report Type: 
  Country: None (occurrence: None)
  Receive Date: 20110712
  Receipt Date: 20110628
  Transmission Date: 20111222
  Serious: Yes (Death, Hospitalization)
  Sender: FDA-Public Use
  Company Number: MTX-11-06

PATIENT
  Age: 12 Year
  Sex: Male

DRUGS (3)
  1. TACROLIMUS [Concomitant]
  2. METHOTREXATE [Suspect]
     Indication: PROPHYLAXIS AGAINST GRAFT VERSUS HOST DISEASE
  3. MYCOPHENOLATE MOFETIL [Concomitant]

REACTIONS (20)
  - CONGENITAL APLASTIC ANAEMIA [None]
  - LYMPHOMA [None]
  - PROPHYLAXIS [None]
  - PLEURAL EFFUSION [None]
  - ILEUS PARALYTIC [None]
  - HYPERGLYCAEMIA [None]
  - RADIOTHERAPY [None]
  - PYREXIA [None]
  - COUGH [None]
  - SKIN EROSION [None]
  - BLOOD MAGNESIUM [None]
  - HYPOPROTEINAEMIA [None]
  - MELAENA [None]
  - GRAFT VERSUS HOST DISEASE [None]
  - CHEMOTHERAPY [None]
  - CARDIO-RESPIRATORY ARREST [None]
  - BONE MARROW TRANSPLANT [None]
  - GLOBULIN [None]
  - MASS [None]
  - ABDOMINAL PAIN [None]
